FAERS Safety Report 21841328 (Version 2)
Quarter: 2023Q1

REPORT INFORMATION
  Report Type: Spontaneous
  Country: NO (occurrence: NO)
  Receive Date: 20230110
  Receipt Date: 20230302
  Transmission Date: 20230417
  Serious: Yes (Hospitalization, Other)
  Sender: FDA-Public Use
  Company Number: None

PATIENT
  Age: 52 Year
  Sex: Female

DRUGS (5)
  1. AUBAGIO [Suspect]
     Active Substance: TERIFLUNOMIDE
     Indication: Multiple sclerosis
     Dosage: 14 MG, QD
     Dates: start: 20161215, end: 20170303
  2. FINGOLIMOD HYDROCHLORIDE [Suspect]
     Active Substance: FINGOLIMOD HYDROCHLORIDE
     Indication: Multiple sclerosis
     Dosage: 0.5 MG, QD
     Dates: start: 20170317, end: 20190424
  3. TECFIDERA [Suspect]
     Active Substance: DIMETHYL FUMARATE
     Indication: Multiple sclerosis
     Dosage: UNK
     Dates: start: 20140424, end: 20161215
  4. BETAFERON [Suspect]
     Active Substance: INTERFERON BETA-1B
     Indication: Multiple sclerosis
     Dosage: 250 UG, QOD
     Dates: start: 20101027, end: 20140428
  5. MABTHERA [Suspect]
     Active Substance: RITUXIMAB
     Indication: Multiple sclerosis
     Dosage: 500 MG (CONTINUED USE OF MEDICINAL PRODUCT 500 MG, 9 MONTHS)
     Dates: start: 20190606

REACTIONS (3)
  - Rectal haemorrhage [Recovered/Resolved]
  - Rectal cancer [Recovered/Resolved]
  - Proctectomy [Recovered/Resolved]

NARRATIVE: CASE EVENT DATE: 20220801
